FAERS Safety Report 19679607 (Version 1)
Quarter: 2021Q3

REPORT INFORMATION
  Report Type: Spontaneous
  Country: JP (occurrence: JP)
  Receive Date: 20210809
  Receipt Date: 20210809
  Transmission Date: 20211014
  Serious: Yes (Hospitalization)
  Sender: FDA-Public Use
  Company Number: JP-PRINSTON PHARMACEUTICAL INC.-2021PRN00286

PATIENT
  Age: 5 Year
  Sex: Female
  Weight: 13.8 kg

DRUGS (6)
  1. DIAZOXIDE [Suspect]
     Active Substance: DIAZOXIDE
     Indication: HYPERINSULINAEMIA
     Dosage: 5 MG/KG, 1X/DAY
     Route: 065
  2. SPIRONOLACTONE. [Concomitant]
     Active Substance: SPIRONOLACTONE
     Indication: AORTIC VALVE INCOMPETENCE
     Dosage: 1 MG/KG, 1X/DAY
     Route: 065
  3. UNSPECIFIED ANTIBIOTICS [Concomitant]
     Active Substance: UNSPECIFIED INGREDIENT
     Route: 065
  4. ENALAPRIL MALEIC ACID [Concomitant]
     Dosage: 0.1 MG/KG, 1X/DAY
     Route: 065
  5. DIAZOXIDE [Suspect]
     Active Substance: DIAZOXIDE
     Dosage: 5 MG/KG, 1X/DAY
     Route: 065
  6. FUROSEMIDE. [Suspect]
     Active Substance: FUROSEMIDE
     Indication: AORTIC VALVE INCOMPETENCE
     Dosage: 1 MG/KG, 1X/DAY
     Route: 065

REACTIONS (3)
  - Hypernatraemia [Recovered/Resolved]
  - Acute kidney injury [Recovered/Resolved]
  - Hyperglycaemic hyperosmolar nonketotic syndrome [Recovered/Resolved]
